FAERS Safety Report 24108962 (Version 1)
Quarter: 2024Q3

REPORT INFORMATION
  Report Type: Spontaneous
  Country: CN (occurrence: CN)
  Receive Date: 20240718
  Receipt Date: 20240718
  Transmission Date: 20241017
  Serious: Yes (Other)
  Sender: TERSERA THERAPEUTICS
  Company Number: CN-AstraZeneca-2024A159725

PATIENT

DRUGS (3)
  1. GOSERELIN [Suspect]
     Active Substance: GOSERELIN
     Indication: Prostate cancer
     Dosage: 3.6 MILLIGRAM, QD
     Route: 058
     Dates: start: 20240704, end: 20240704
  2. ZOLADEX [Suspect]
     Active Substance: GOSERELIN ACETATE
     Indication: Prostate cancer
     Dosage: UNK
     Route: 065
  3. BICALUTAMIDE [Suspect]
     Active Substance: BICALUTAMIDE
     Indication: Prostate cancer
     Dosage: 50 MILLIGRAM, QD
     Route: 048
     Dates: start: 20240605, end: 20240708

REACTIONS (2)
  - Myelosuppression [Recovering/Resolving]
  - Hypoproteinaemia [Unknown]

NARRATIVE: CASE EVENT DATE: 20240704
